FAERS Safety Report 5371418-8 (Version None)
Quarter: 2007Q2

REPORT INFORMATION
  Report Type: 
  Country: None (occurrence: None)
  Receive Date: 20070622
  Receipt Date: 20070612
  Transmission Date: 20071010
  Serious: No
  Sender: FDA-Public Use
  Company Number: 032-106

PATIENT

DRUGS (1)
  1. TEVETEN [Suspect]
     Dosage: 1800 MG ONCE PO
     Route: 048

REACTIONS (2)
  - ACCIDENTAL EXPOSURE [None]
  - WRONG DRUG ADMINISTERED [None]
